FAERS Safety Report 7465332-1 (Version None)
Quarter: 2011Q2

REPORT INFORMATION
  Report Type: 
  Country: None (occurrence: None)
  Receive Date: 20110509
  Receipt Date: 20110502
  Transmission Date: 20111010
  Serious: Yes (Hospitalization)
  Sender: FDA-Public Use
  Company Number: US-ELI_LILLY_AND_COMPANY-US201105000423

PATIENT
  Sex: Male
  Weight: 89 kg

DRUGS (22)
  1. PROCHLORPERAZINE TAB [Concomitant]
     Indication: NAUSEA
     Dosage: 10 MG, PRN
     Route: 048
  2. MEGACE [Concomitant]
     Dosage: 40 MG, TID
     Route: 048
  3. TAMSULOSIN HCL [Concomitant]
     Dosage: 0.4 MG, EACH EVENING
     Route: 048
  4. HYDROCHLOROTHIAZIDE [Concomitant]
     Dosage: 25 MG, UNK
     Route: 048
  5. CARBOPLATIN [Suspect]
     Indication: NON-SMALL CELL LUNG CANCER
     Dosage: 6 AUC, EVERY 21 DAYS
     Route: 042
     Dates: start: 20101221, end: 20110221
  6. ZOFRAN [Concomitant]
     Indication: NAUSEA
     Dosage: 8 MG, PRN
     Route: 048
  7. LEVITRA [Concomitant]
     Dosage: 20 MG, PRN
     Route: 048
  8. POTASSIUM CHLORIDE [Concomitant]
     Dosage: 10 MEQ, BID
     Route: 048
  9. FOLIC ACID [Concomitant]
     Indication: PROPHYLAXIS
     Dosage: 1 MG, UNK
     Dates: start: 20101206
  10. VITAMIN B-12 [Concomitant]
     Indication: PROPHYLAXIS
     Dosage: UNK, MONTHLY (1/M)
     Route: 030
     Dates: start: 20101206
  11. TENORMIN [Concomitant]
     Dosage: 50 MG, UNK
  12. LISINOPRIL [Concomitant]
     Dosage: 10 MG, UNK
     Route: 048
  13. MEGACE ES [Concomitant]
     Dosage: 625 MG, UNK
     Route: 048
  14. TENORMIN [Concomitant]
     Dosage: 100 MG, UNK
     Route: 048
  15. PEMETREXED [Suspect]
     Indication: NON-SMALL CELL LUNG CANCER
     Dosage: 500 MG/M2, EVERY 21 DAYS
     Route: 042
     Dates: start: 20101221
  16. ATIVAN [Concomitant]
     Dosage: 1 MG, PRN
     Route: 048
  17. CIALIS [Concomitant]
     Indication: ERECTILE DYSFUNCTION
     Dosage: 10 MG, PRN
     Route: 048
  18. ZOLOFT [Concomitant]
     Dosage: 50 MG, UNK
     Route: 048
  19. PEMETREXED [Suspect]
     Dosage: 500 MG/M2, EVERY 21 DAYS
     Route: 042
     Dates: start: 20110314
  20. PHENERGAN HCL [Concomitant]
     Indication: VOMITING
     Dosage: 25 MG, PRN
     Route: 048
  21. ENSURE                             /06184901/ [Concomitant]
     Route: 048
  22. MULTIPLE VITAMIN [Concomitant]
     Route: 048

REACTIONS (4)
  - HYPOTENSION [None]
  - DEHYDRATION [None]
  - DIZZINESS [None]
  - CHEST PAIN [None]
